FAERS Safety Report 15466734 (Version 1)
Quarter: 2018Q4

REPORT INFORMATION
  Report Type: Spontaneous
  Country: HR (occurrence: HR)
  Receive Date: 20181005
  Receipt Date: 20181005
  Transmission Date: 20190204
  Serious: Yes (Other)
  Sender: FDA-Public Use
  Company Number: HR-BRISTOL-MYERS SQUIBB COMPANY-BMS-2018-090875

PATIENT
  Age: 62 Year
  Sex: Male
  Weight: 105 kg

DRUGS (5)
  1. TOUJEO [Concomitant]
     Active Substance: INSULIN GLARGINE
     Indication: TYPE 2 DIABETES MELLITUS
     Route: 058
  2. ELIQUIS [Suspect]
     Active Substance: APIXABAN
     Indication: CEREBROVASCULAR ACCIDENT PROPHYLAXIS
     Dosage: 10 MG, DAILY
     Route: 048
     Dates: start: 20180901, end: 20180903
  3. VICTOZA [Concomitant]
     Active Substance: LIRAGLUTIDE
     Indication: TYPE 2 DIABETES MELLITUS
     Route: 058
  4. JARDIANCE [Concomitant]
     Active Substance: EMPAGLIFLOZIN
     Indication: TYPE 2 DIABETES MELLITUS
     Dosage: 10 MG, DAILY
     Route: 048
     Dates: start: 2017
  5. PRILEN PLUS [Concomitant]
     Indication: HYPERTENSION
     Dosage: 1 DF, DAILY
     Route: 048
     Dates: start: 2005

REACTIONS (5)
  - Wound haemorrhage [Not Recovered/Not Resolved]
  - Intra-abdominal haematoma [Not Recovered/Not Resolved]
  - Wound [Not Recovered/Not Resolved]
  - Haematoma [Not Recovered/Not Resolved]
  - Off label use [Unknown]

NARRATIVE: CASE EVENT DATE: 20180902
